FAERS Safety Report 20497179 (Version 1)
Quarter: 2022Q1

REPORT INFORMATION
  Report Type: Spontaneous
  Country: BE (occurrence: BE)
  Receive Date: 20220221
  Receipt Date: 20220221
  Transmission Date: 20220423
  Serious: Yes (Death, Hospitalization, Other)
  Sender: FDA-Public Use
  Company Number: BE-NOVARTISPH-NVSC2022BE039571

PATIENT
  Age: 81 Year
  Sex: Female

DRUGS (7)
  1. CEFTAZIDIME [Suspect]
     Active Substance: CEFTAZIDIME
     Indication: Achromobacter infection
     Dosage: 2 G, TID
     Route: 065
  2. AMOXICILLIN\CLAVULANIC ACID [Suspect]
     Active Substance: AMOXICILLIN\CLAVULANIC ACID
     Indication: Erysipelas
     Dosage: 875 MG, TID
     Route: 065
     Dates: start: 202001
  3. AMOXICILLIN\CLAVULANIC ACID [Suspect]
     Active Substance: AMOXICILLIN\CLAVULANIC ACID
     Dosage: 1 G, QID (EMPIRICAL THERAPY)
     Route: 065
  4. PIPERACILLIN AND TAZOBACTAM [Suspect]
     Active Substance: PIPERACILLIN SODIUM\TAZOBACTAM SODIUM
     Indication: Achromobacter infection
     Dosage: 4 G, TID
     Route: 065
  5. SULFAMETHOXAZOLE\TRIMETHOPRIM [Suspect]
     Active Substance: SULFAMETHOXAZOLE\TRIMETHOPRIM
     Indication: Achromobacter infection
     Dosage: UNK
     Route: 065
  6. CEFOTAXIME [Suspect]
     Active Substance: CEFOTAXIME SODIUM
     Indication: Product used for unknown indication
     Dosage: UNK
     Route: 065
  7. MEROPENEM [Suspect]
     Active Substance: MEROPENEM
     Indication: Achromobacter infection
     Dosage: UNK
     Route: 065

REACTIONS (12)
  - Drug ineffective [Fatal]
  - Condition aggravated [Fatal]
  - Pyrexia [Unknown]
  - Dyspnoea [Unknown]
  - Chronic inflammatory response syndrome [Unknown]
  - Achromobacter infection [Unknown]
  - Cardiac failure [Unknown]
  - Renal failure [Unknown]
  - Endocarditis [Unknown]
  - Aortic stenosis [Unknown]
  - Drug resistance [Unknown]
  - Mitral valve disease [Unknown]
